FAERS Safety Report 12243445 (Version 1)
Quarter: 2016Q2

REPORT INFORMATION
  Report Type: Report from Study
  Country: US (occurrence: US)
  Receive Date: 20160406
  Receipt Date: 20160406
  Transmission Date: 20160815
  Serious: Yes (Hospitalization, Other)
  Sender: FDA-Public Use
  Company Number: ADR-2015-00554

PATIENT

DRUGS (5)
  1. HYDROMORPHONE [Suspect]
     Active Substance: HYDROMORPHONE
     Dosage: 1.5 ML/HOUR
     Route: 037
  2. GABAPENTIN. [Concomitant]
     Active Substance: GABAPENTIN
  3. OXYCODONE HYDROCHLORIDE. [Concomitant]
     Active Substance: OXYCODONE HYDROCHLORIDE
  4. BACLOFEN. [Suspect]
     Active Substance: BACLOFEN
     Dosage: 1.5 ML/HOUR
     Route: 037
  5. MORPHINE ER [Concomitant]
     Active Substance: MORPHINE

REACTIONS (3)
  - Nausea [Recovered/Resolved]
  - Post lumbar puncture syndrome [Recovered/Resolved]
  - Cerebrospinal fluid leakage [Recovered/Resolved]
